FAERS Safety Report 10579391 (Version 3)
Quarter: 2015Q2

REPORT INFORMATION
  Report Type: Spontaneous
  Country: US (occurrence: US)
  Receive Date: 20141112
  Receipt Date: 20150519
  Transmission Date: 20150821
  Serious: Yes (Hospitalization)
  Sender: FDA-Public Use
  Company Number: US-BAYER-2014-166457

PATIENT
  Age: 25 Year
  Sex: Female
  Weight: 65.76 kg

DRUGS (1)
  1. MIRENA [Suspect]
     Active Substance: LEVONORGESTREL
     Indication: CONTRACEPTION
     Dosage: 20 MCG/24HR, CONT
     Route: 015
     Dates: start: 20090817, end: 20101105

REACTIONS (13)
  - Scar [None]
  - Sexual dysfunction [Not Recovered/Not Resolved]
  - Stress [None]
  - Off label use of device [None]
  - Dyspareunia [None]
  - Fear of disease [None]
  - Anxiety [None]
  - Uterine perforation [Not Recovered/Not Resolved]
  - Injury [Not Recovered/Not Resolved]
  - Vaginal haemorrhage [None]
  - Device dislocation [Not Recovered/Not Resolved]
  - Abdominal pain [Not Recovered/Not Resolved]
  - Device issue [Not Recovered/Not Resolved]

NARRATIVE: CASE EVENT DATE: 201008
